FAERS Safety Report 19789126 (Version 1)
Quarter: 2021Q3

REPORT INFORMATION
  Report Type: Spontaneous
  Country: CA (occurrence: CA)
  Receive Date: 20210904
  Receipt Date: 20210904
  Transmission Date: 20211014
  Serious: Yes (Hospitalization)
  Sender: FDA-Public Use
  Company Number: CA-ACCORD-236984

PATIENT
  Age: 78 Year
  Sex: Female
  Weight: 47 kg

DRUGS (11)
  1. IMODIUM [Concomitant]
     Active Substance: LOPERAMIDE HYDROCHLORIDE
  2. COLECALCIFEROL [Concomitant]
     Active Substance: CHOLECALCIFEROL
     Dosage: 1000 IU
  3. EFFEXOR [Concomitant]
     Active Substance: VENLAFAXINE HYDROCHLORIDE
  4. PROCHLORAZINE [Concomitant]
  5. DEXAMETHASONE. [Concomitant]
     Active Substance: DEXAMETHASONE
  6. CLONAZEPAM. [Concomitant]
     Active Substance: CLONAZEPAM
  7. GRASTOFIL [Concomitant]
     Active Substance: FILGRASTIM
  8. FLUOROURACIL. [Suspect]
     Active Substance: FLUOROURACIL
     Indication: COLON CANCER
     Route: 042
  9. FLUTICASONE. [Concomitant]
     Active Substance: FLUTICASONE
  10. ELIQUIS [Concomitant]
     Active Substance: APIXABAN
  11. SYNTHROID [Concomitant]
     Active Substance: LEVOTHYROXINE SODIUM

REACTIONS (4)
  - Vomiting [Recovered/Resolved]
  - Pyrexia [Recovered/Resolved]
  - Reversible splenial lesion syndrome [Recovered/Resolved]
  - Confusional state [Recovered/Resolved]
